FAERS Safety Report 9694085 (Version 4)
Quarter: 2013Q4

REPORT INFORMATION
  Report Type: Spontaneous
  Country: US (occurrence: US)
  Receive Date: 20131118
  Receipt Date: 20131204
  Transmission Date: 20140711
  Serious: No
  Sender: FDA-Public Use
  Company Number: US-GILEAD-2013-0086955

PATIENT
  Sex: Male

DRUGS (4)
  1. LETAIRIS [Suspect]
     Indication: PORTOPULMONARY HYPERTENSION
     Dosage: 10 MG, QD
     Dates: start: 20130625
  2. LETAIRIS [Suspect]
     Indication: LIVER DISORDER
  3. TYVASO [Concomitant]
  4. ADCIRCA [Concomitant]

REACTIONS (4)
  - Dysphonia [Unknown]
  - Cough [Unknown]
  - Respiratory tract infection [Unknown]
  - Nasopharyngitis [Unknown]
